FAERS Safety Report 7658924-8 (Version None)
Quarter: 2011Q3

REPORT INFORMATION
  Report Type: 
  Country: None (occurrence: None)
  Receive Date: 20110805
  Receipt Date: 20110803
  Transmission Date: 20111222
  Serious: Yes (Hospitalization)
  Sender: FDA-Public Use
  Company Number: US-SANOFI-AVENTIS-2011SA049629

PATIENT
  Age: 58 Year
  Sex: Male
  Weight: 122.72 kg

DRUGS (3)
  1. PLAVIX [Suspect]
     Indication: STENT PLACEMENT
     Route: 065
     Dates: start: 20100101, end: 20110401
  2. ALL OTHER THERAPEUTIC PRODUCTS [Concomitant]
  3. TIKOSYN [Suspect]
     Indication: CARDIAC PACEMAKER INSERTION
     Route: 065
     Dates: start: 20110101

REACTIONS (1)
  - RENAL FAILURE [None]
